FAERS Safety Report 10070990 (Version 1)
Quarter: 2014Q2

REPORT INFORMATION
  Report Type: Report from Study
  Country: BE (occurrence: BE)
  Receive Date: 20140410
  Receipt Date: 20140410
  Transmission Date: 20141212
  Serious: Yes (Hospitalization)
  Sender: FDA-Public Use
  Company Number: BE-GLAXOSMITHKLINE-B0983708A

PATIENT
  Sex: Female
  Weight: 61 kg

DRUGS (11)
  1. PAZOPANIB [Suspect]
     Indication: METASTATIC RENAL CELL CARCINOMA
  2. ASAFLOW [Concomitant]
     Indication: THROMBOSIS PROPHYLAXIS
     Dosage: 80MG PER DAY
     Route: 048
     Dates: start: 20140327
  3. ACETYLCYSTEINE [Concomitant]
     Indication: COUGH
     Dosage: 600MG PER DAY
     Route: 048
  4. CLEXANE [Concomitant]
     Indication: THROMBOSIS PROPHYLAXIS
     Route: 058
     Dates: start: 20140320
  5. CRESTOR [Concomitant]
     Indication: BLOOD CHOLESTEROL
     Dosage: 10MG PER DAY
     Route: 048
  6. DUOVENT [Concomitant]
     Indication: DYSPNOEA
     Route: 055
     Dates: start: 20140320
  7. DAFALGAN [Concomitant]
     Indication: PAIN
     Dosage: 3MG PER DAY
     Route: 048
  8. ISOTEN [Concomitant]
     Indication: HYPERTENSION
     Dosage: 5MG PER DAY
     Route: 048
  9. PANTOPRAZOLE [Concomitant]
     Indication: PROPHYLAXIS
     Dosage: 40MG PER DAY
     Route: 048
  10. INNOHEP [Concomitant]
     Indication: THROMBOSIS PROPHYLAXIS
     Route: 058
     Dates: start: 20140325
  11. ZOLPIDEM [Concomitant]
     Indication: INSOMNIA
     Route: 048

REACTIONS (1)
  - Cardiac failure [Not Recovered/Not Resolved]
